FAERS Safety Report 8552999-X (Version None)
Quarter: 2012Q3

REPORT INFORMATION
  Report Type: 
  Country: None (occurrence: None)
  Receive Date: 20120720
  Receipt Date: 20110718
  Transmission Date: 20120928
  Serious: Yes (Hospitalization)
  Sender: FDA-Public Use
  Company Number: KV201100116

PATIENT
  Age: 52 Year
  Sex: Female

DRUGS (5)
  1. LAMICTAL [Concomitant]
  2. LORAZEPAM [Concomitant]
  3. VARENICLINE [Concomitant]
  4. MORPHINE SULFATE [Suspect]
     Indication: NECK PAIN
     Dosage: 15 MG, BID, ORAL
     Route: 048
     Dates: start: 20080601, end: 20080701
  5. MORPHINE SULFATE [Suspect]
     Indication: MUSCULOSKELETAL PAIN
     Dosage: 15 MG, BID, ORAL
     Route: 048
     Dates: start: 20080601, end: 20080701

REACTIONS (3)
  - CONVULSION [None]
  - PRESYNCOPE [None]
  - MALAISE [None]
